FAERS Safety Report 10716238 (Version 1)
Quarter: 2015Q1

REPORT INFORMATION
  Report Type: Spontaneous
  Country: US (occurrence: None)
  Receive Date: 20150115
  Receipt Date: 20150115
  Transmission Date: 20150721
  Serious: Yes (Disabling)
  Sender: FDA-Public Use
  Company Number: None

PATIENT
  Age: 50 Year
  Sex: Female
  Weight: 48.2 kg

DRUGS (1)
  1. PHENYTOIN 100 MG PER 2 ML WESTWARD PHARMACEUTICALS [Suspect]
     Active Substance: PHENYTOIN
     Indication: SEIZURE
     Route: 042
     Dates: start: 20141223, end: 20141228

REACTIONS (4)
  - Infusion site erythema [None]
  - Infusion site haemorrhage [None]
  - Infusion site inflammation [None]
  - Purple glove syndrome [None]

NARRATIVE: CASE EVENT DATE: 20141228
